FAERS Safety Report 7526716-6 (Version None)
Quarter: 2011Q2

REPORT INFORMATION
  Report Type: 
  Country: None (occurrence: None)
  Receive Date: 20110606
  Receipt Date: 20110527
  Transmission Date: 20111010
  Serious: Yes (Hospitalization, Other)
  Sender: FDA-Public Use
  Company Number: US-ASTRAZENECA-2009UW17612

PATIENT
  Age: 71 Year
  Sex: Female
  Weight: 63 kg

DRUGS (8)
  1. PULMICORT [Suspect]
     Indication: CHRONIC OBSTRUCTIVE PULMONARY DISEASE
     Route: 055
     Dates: start: 20080305
  2. ALBUTEROL SULFATE AUTOHALER [Concomitant]
  3. IPRATROPIUM BROMIDE [Concomitant]
  4. PULMICORT [Suspect]
     Route: 055
     Dates: start: 20100101
  5. TRANXENE [Concomitant]
     Indication: ANXIETY
  6. RECLAST [Concomitant]
     Indication: OSTEOPOROSIS
  7. HYDROCHLOROTHIAZIDE [Concomitant]
     Indication: HYPERTENSION
  8. BONIVA [Concomitant]
     Indication: OSTEOPOROSIS

REACTIONS (24)
  - DYSPEPSIA [None]
  - CANDIDIASIS [None]
  - DYSPNOEA [None]
  - VOCAL CORD DISORDER [None]
  - ANXIETY DISORDER [None]
  - HYPERCHOLESTEROLAEMIA [None]
  - DRUG INEFFECTIVE [None]
  - DYSURIA [None]
  - LUNG NEOPLASM [None]
  - COUGH [None]
  - INFECTIVE EXACERBATION OF CHRONIC OBSTRUCTIVE AIRWAYS DISEASE [None]
  - FLANK PAIN [None]
  - CHRONIC OBSTRUCTIVE PULMONARY DISEASE [None]
  - NAUSEA [None]
  - HYPERTENSION [None]
  - THROAT IRRITATION [None]
  - HYPOXIA [None]
  - DEPRESSION [None]
  - RHINITIS [None]
  - DYSPHONIA [None]
  - OSTEOPOROSIS [None]
  - SALIVARY GLAND PAIN [None]
  - GASTROOESOPHAGEAL REFLUX DISEASE [None]
  - OEDEMA PERIPHERAL [None]
